FAERS Safety Report 10209916 (Version 1)
Quarter: 2014Q2

REPORT INFORMATION
  Report Type: Report from Study
  Country: US (occurrence: US)
  Receive Date: 20140602
  Receipt Date: 20140602
  Transmission Date: 20141212
  Serious: Yes (Hospitalization)
  Sender: FDA-Public Use
  Company Number: US-JNJFOC-20140513244

PATIENT
  Age: 67 Year
  Sex: Male
  Weight: 79 kg

DRUGS (14)
  1. ABIRATERONE ACETATE [Suspect]
     Indication: PROSTATE CANCER
     Route: 048
     Dates: start: 20140101, end: 20140427
  2. ABIRATERONE ACETATE [Suspect]
     Indication: PROSTATE CANCER
     Route: 048
     Dates: start: 20140427, end: 20140515
  3. ABIRATERONE ACETATE [Suspect]
     Indication: PROSTATE CANCER
     Route: 048
     Dates: start: 20140515
  4. ENZALUTAMIDE [Suspect]
     Indication: PROSTATE CANCER
     Route: 048
     Dates: start: 20140101, end: 20140427
  5. ENZALUTAMIDE [Suspect]
     Indication: PROSTATE CANCER
     Route: 048
     Dates: start: 20140515
  6. ENZALUTAMIDE [Suspect]
     Indication: PROSTATE CANCER
     Route: 048
     Dates: start: 20140427, end: 20140515
  7. DILTIZEM [Concomitant]
     Indication: ANGINA PECTORIS
     Route: 048
     Dates: start: 20140501
  8. DILTIZEM [Concomitant]
     Indication: HYPERTENSION
     Route: 048
     Dates: start: 20140501
  9. ARMOUR THYROID [Concomitant]
     Indication: HYPOTHYROIDISM
     Route: 048
  10. BYSTOLIC [Concomitant]
     Indication: HYPERTENSION
     Route: 048
     Dates: start: 2011
  11. CARDIZEM [Concomitant]
     Indication: HYPERTENSION
     Route: 048
     Dates: start: 2010
  12. LISINOPRIL [Concomitant]
     Indication: HYPERTENSION
     Route: 048
     Dates: start: 20140212
  13. PANTOPRAZOLE [Concomitant]
     Indication: GASTROOESOPHAGEAL REFLUX DISEASE
     Route: 065
  14. CHERRY-FLEX [Concomitant]
     Indication: NUTRITIONAL SUPPLEMENTATION
     Route: 048
     Dates: start: 20140429

REACTIONS (2)
  - Transient ischaemic attack [Recovered/Resolved]
  - Pancreatitis [Recovered/Resolved]
